FAERS Safety Report 4971217-2 (Version None)
Quarter: 2006Q2

REPORT INFORMATION
  Report Type: 
  Country: None (occurrence: None)
  Receive Date: 20060413
  Receipt Date: 20000516
  Transmission Date: 20061013
  Serious: Yes (Hospitalization)
  Sender: FDA-Public Use
  Company Number: US-MERCK-00051747

PATIENT
  Age: 52 Year
  Sex: Female
  Weight: 64 kg

DRUGS (13)
  1. VIOXX [Suspect]
     Indication: ARTHRITIS
     Route: 048
     Dates: start: 19990801, end: 20040101
  2. VIOXX [Suspect]
     Route: 048
     Dates: start: 19990801, end: 20040101
  3. VIOXX [Suspect]
     Indication: ARTHRALGIA
     Route: 048
     Dates: start: 19990801, end: 20040101
  4. VIOXX [Suspect]
     Route: 048
     Dates: start: 19990801, end: 20040101
  5. LIPITOR [Concomitant]
     Route: 065
  6. DIAZIDE [Concomitant]
     Route: 065
  7. DITROPAN [Concomitant]
     Route: 065
  8. NEXIUM [Concomitant]
     Route: 065
  9. VERAPAMIL [Concomitant]
     Route: 065
  10. DETROL [Concomitant]
     Route: 065
  11. WARFARIN [Concomitant]
     Route: 065
  12. [THERAPY UNSPECIFIED] [Concomitant]
     Route: 065
  13. [THERAPY UNSPECIFIED] [Concomitant]
     Route: 065

REACTIONS (8)
  - ARTHROPATHY [None]
  - CORONARY ARTERY DISEASE [None]
  - FALL [None]
  - HYPERTENSION [None]
  - MYOCARDIAL INFARCTION [None]
  - OEDEMA [None]
  - PALPITATIONS [None]
  - UTERINE CANCER [None]
